FAERS Safety Report 8263918-8 (Version None)
Quarter: 2012Q2

REPORT INFORMATION
  Report Type: 
  Country: None (occurrence: None)
  Receive Date: 20120406
  Receipt Date: 20120330
  Transmission Date: 20120825
  Serious: Yes (Other)
  Sender: FDA-Public Use
  Company Number: US-AMGEN-USASP2012020628

PATIENT
  Age: 23 Year
  Sex: Female

DRUGS (2)
  1. ENBREL [Suspect]
     Indication: RHEUMATOID ARTHRITIS
     Dosage: 50 MG, QWK
     Dates: start: 20100101, end: 20120327
  2. ACTEMRA [Concomitant]
     Dosage: UNK

REACTIONS (7)
  - CHEST PAIN [None]
  - INJECTION SITE WARMTH [None]
  - PALPITATIONS [None]
  - INJECTION SITE ERYTHEMA [None]
  - PULMONARY HYPERTENSION [None]
  - INJECTION SITE SWELLING [None]
  - INJECTION SITE PAIN [None]
